FAERS Safety Report 9607859 (Version 1)
Quarter: 2013Q4

REPORT INFORMATION
  Report Type: Spontaneous
  Country: PL (occurrence: None)
  Receive Date: 20131004
  Receipt Date: 20131004
  Transmission Date: 20140711
  Serious: Yes (Death, Other)
  Sender: FDA-Public Use
  Company Number: 2013000254

PATIENT
  Age: 33 Year
  Sex: Female

DRUGS (6)
  1. ACEON [Suspect]
     Indication: CARDIAC FAILURE
     Route: 048
  2. METOPROLOL (METOPROLOL) [Concomitant]
  3. SPIRONOLACTONE (SPIRONOLACTONE) [Concomitant]
  4. FUROSEMIDE (FUROSEMIDE) [Concomitant]
  5. AMIODARONE (AMIODARONE) [Concomitant]
  6. SILDENAFIL (SILDENAFIL) [Concomitant]

REACTIONS (3)
  - Ventricular tachycardia [None]
  - Pulmonary hypertension [None]
  - Depression [None]
